FAERS Safety Report 6215635-3 (Version None)
Quarter: 2009Q2

REPORT INFORMATION
  Report Type: 
  Country: None (occurrence: None)
  Receive Date: 20090603
  Receipt Date: 20090603
  Transmission Date: 20091009
  Serious: Yes (Life-Threatening)
  Sender: FDA-Public Use
  Company Number: None

PATIENT
  Sex: Female
  Weight: 83.9154 kg

DRUGS (2)
  1. LEVAQUIN [Suspect]
     Indication: NASOPHARYNGITIS
     Dosage: 1 PER DAY FOR 5 DAYS 1 PER DAY ORAL
     Route: 048
     Dates: start: 20090417, end: 20090421
  2. COUMADIN [Concomitant]

REACTIONS (7)
  - GAIT DISTURBANCE [None]
  - HAEMORRHAGE SUBCUTANEOUS [None]
  - MALAISE [None]
  - OEDEMA PERIPHERAL [None]
  - PAIN [None]
  - TENDON DISORDER [None]
  - VASCULAR RUPTURE [None]
